FAERS Safety Report 9710867 (Version 3)
Quarter: 2014Q2

REPORT INFORMATION
  Report Type: Spontaneous
  Country: US (occurrence: US)
  Receive Date: 20131126
  Receipt Date: 20140510
  Transmission Date: 20141212
  Serious: No
  Sender: FDA-Public Use
  Company Number: US-BRISTOL-MYERS SQUIBB COMPANY-19029040

PATIENT
  Age: 71 Year
  Sex: Male
  Weight: 71.65 kg

DRUGS (7)
  1. BYDUREON [Suspect]
     Indication: TYPE 2 DIABETES MELLITUS
     Dosage: THERAPY ON 01APR13,22APR13,17JUN13,24JUN13,28MAY13?LOT NO:73263 EXPDT:JUN15
     Route: 058
     Dates: start: 20130322
  2. METFORMIN HCL [Suspect]
  3. CORTISONE [Suspect]
     Dosage: INJECTION EVERY 3-5 MONTHS
     Dates: start: 20130621
  4. HUMALOG [Suspect]
     Dosage: THERAPY ON 21JUN13
  5. AMARYL [Suspect]
  6. SIMVASTATIN [Concomitant]
  7. LISINOPRIL [Concomitant]

REACTIONS (9)
  - Injection site haemorrhage [Unknown]
  - Injection site swelling [Unknown]
  - Weight decreased [Unknown]
  - Injection site extravasation [Recovered/Resolved]
  - Blood glucose increased [Unknown]
  - Injection site bruising [Unknown]
  - Injection site pain [Unknown]
  - Vision blurred [Unknown]
  - Presyncope [Unknown]
